FAERS Safety Report 9170147 (Version 1)
Quarter: 2013Q1

REPORT INFORMATION
  Report Type: Spontaneous
  Country: US (occurrence: None)
  Receive Date: 20130307
  Receipt Date: 20130307
  Transmission Date: 20140127
  Serious: Yes (Hospitalization)
  Sender: FDA-Public Use
  Company Number: USA/USA/13/0028356

PATIENT
  Age: 65 Year
  Sex: Male

DRUGS (9)
  1. NAPROXEN SODIUM [Suspect]
     Indication: PRODUCT USED FOR UNKNOWN INDICATION
  2. ASPIRIN (ACETYLSALICYLIC ACID) [Suspect]
     Indication: CARDIOVASCULAR EVENT PROPHYLAXIS
     Dates: start: 2002
  3. ASPIRIN (ACETYLSALICYLIC ACID) [Suspect]
     Dates: start: 2002
  4. ROSUVASTATIN (ROSUVASTATIN) [Concomitant]
  5. VALSARTAN (VALSARTAN) [Concomitant]
  6. EZETIMIBE (EZETIMIBE) [Concomitant]
  7. FISH OIL (FISH OIL) [Concomitant]
  8. VITAMINS [Concomitant]
  9. COENZYME Q10 (UBIDECARENONE) [Concomitant]

REACTIONS (6)
  - Upper gastrointestinal haemorrhage [None]
  - Faeces discoloured [None]
  - Gastric ulcer [None]
  - Haemoglobin decreased [None]
  - Haematocrit decreased [None]
  - High density lipoprotein increased [None]
